FAERS Safety Report 5359603-2 (Version None)
Quarter: 2007Q2

REPORT INFORMATION
  Report Type: 
  Country: None (occurrence: None)
  Receive Date: 20070530
  Receipt Date: 20061117
  Transmission Date: 20071010
  Serious: Yes (Hospitalization)
  Sender: FDA-Public Use
  Company Number: US200606002201

PATIENT
  Age: 63 Year
  Sex: Female
  Weight: 89.3 kg

DRUGS (2)
  1. ZYPREXA [Suspect]
     Indication: DEPRESSION
     Dosage: 20 MG,
     Dates: start: 20010801, end: 20050901
  2. PAROXETINE [Concomitant]

REACTIONS (1)
  - DIABETES MELLITUS [None]
